FAERS Safety Report 20168047 (Version 6)
Quarter: 2024Q1

REPORT INFORMATION
  Report Type: Other
  Country: DE (occurrence: None)
  Receive Date: 20211210
  Receipt Date: 20240206
  Transmission Date: 20240410
  Serious: No
  Sender: FDA-Public Use
  Company Number: DE-ROCHE-2970093

PATIENT
  Age: 43 Year
  Sex: Female
  Weight: 92 kg

DRUGS (2)
  1. OCREVUS [Suspect]
     Active Substance: OCRELIZUMAB
     Indication: Relapsing multiple sclerosis
     Route: 042
     Dates: start: 20180514, end: 20180528
  2. OCREVUS [Suspect]
     Active Substance: OCRELIZUMAB
     Dosage: MOST RECENT DOSE 3/MAY/2021 (600 MG)
     Route: 042
     Dates: start: 20181119

REACTIONS (2)
  - COVID-19 [Unknown]
  - Blood immunoglobulin G decreased [Recovered/Resolved]

NARRATIVE: CASE EVENT DATE: 20211115
